FAERS Safety Report 7077643-2 (Version None)
Quarter: 2010Q4

REPORT INFORMATION
  Report Type: 
  Country: None (occurrence: None)
  Receive Date: 20101101
  Receipt Date: 20101012
  Transmission Date: 20110411
  Serious: Yes (Other)
  Sender: FDA-Public Use
  Company Number: US-AMGEN-US359582

PATIENT

DRUGS (7)
  1. NPLATE [Suspect]
     Indication: IDIOPATHIC THROMBOCYTOPENIC PURPURA
     Dosage: 9 A?G/KG, QWK
     Route: 058
     Dates: start: 20090202, end: 20090930
  2. LANSOPRAZOLE [Concomitant]
     Dosage: UNK UNK, UNK
     Route: 065
  3. PAROXETINE HYDROCHLORIDE [Concomitant]
     Dosage: UNK UNK, UNK
     Route: 065
  4. IRON [Concomitant]
     Dosage: UNK UNK, UNK
     Route: 065
  5. TOLTERODINE TARTRATE [Concomitant]
     Dosage: UNK UNK, UNK
     Route: 065
  6. TOPROL-XL [Concomitant]
     Dosage: UNK UNK, UNK
     Route: 065
  7. ACETAMINOPHEN [Concomitant]
     Dosage: UNK UNK, UNK
     Route: 065

REACTIONS (6)
  - DRUG INEFFECTIVE [None]
  - ORAL HERPES [None]
  - SPLENECTOMY [None]
  - THERAPEUTIC RESPONSE DECREASED [None]
  - THROMBOCYTOPENIA [None]
  - UPPER RESPIRATORY TRACT INFECTION [None]
